FAERS Safety Report 18516349 (Version 6)
Quarter: 2025Q4

REPORT INFORMATION
  Report Type: Spontaneous
  Country: EU (occurrence: EU)
  Receive Date: 20201118
  Receipt Date: 20251030
  Transmission Date: 20260118
  Serious: Yes (Death, Other)
  Sender: MYLAN
  Company Number: EU-002147023-NVSC2020PL285416

PATIENT
  Age: 33 Year
  Sex: Female

DRUGS (17)
  1. EVEROLIMUS [Suspect]
     Active Substance: EVEROLIMUS
     Indication: Metastatic neoplasm
     Dosage: UNK UNK, CYCLE (DISCONTINUED AFTER THE FOURTH CYCLE)
  2. EVEROLIMUS [Suspect]
     Active Substance: EVEROLIMUS
     Indication: Carcinoid tumour pulmonary
     Dosage: UNK UNK, CYCLE (DISCONTINUED AFTER THE FOURTH CYCLE)
     Route: 065
  3. EVEROLIMUS [Suspect]
     Active Substance: EVEROLIMUS
     Indication: Lung neoplasm malignant
     Dosage: UNK UNK, CYCLE (DISCONTINUED AFTER THE FOURTH CYCLE)
     Route: 065
  4. EVEROLIMUS [Suspect]
     Active Substance: EVEROLIMUS
     Dosage: UNK UNK, CYCLE (DISCONTINUED AFTER THE FOURTH CYCLE)
  5. CAPECITABINE [Suspect]
     Active Substance: CAPECITABINE
     Indication: Lung neoplasm malignant
     Dosage: 750 MILLIGRAM/SQ. METER, BID (750 MG/M2, CYCLIC(DAY 1-14)(18 CYCLES-20 MONTHS)
  6. CAPECITABINE [Suspect]
     Active Substance: CAPECITABINE
     Indication: Metastatic neoplasm
     Dosage: 750 MILLIGRAM/SQ. METER, BID (750 MG/M2, CYCLIC(DAY 1-14)(18 CYCLES-20 MONTHS)
     Route: 065
  7. CAPECITABINE [Suspect]
     Active Substance: CAPECITABINE
     Indication: Palliative care
     Dosage: 750 MILLIGRAM/SQ. METER, BID (750 MG/M2, CYCLIC(DAY 1-14)(18 CYCLES-20 MONTHS)
     Route: 065
  8. CAPECITABINE [Suspect]
     Active Substance: CAPECITABINE
     Indication: Lung cancer metastatic
     Dosage: 750 MILLIGRAM/SQ. METER, BID (750 MG/M2, CYCLIC(DAY 1-14)(18 CYCLES-20 MONTHS)
  9. CAPECITABINE [Suspect]
     Active Substance: CAPECITABINE
     Indication: Malignant neoplasm progression
  10. CAPECITABINE [Suspect]
     Active Substance: CAPECITABINE
     Indication: Chemotherapy
  11. TEMOZOLOMIDE [Suspect]
     Active Substance: TEMOZOLOMIDE
     Indication: Metastatic neoplasm
     Dosage: 200 MILLIGRAM/SQ. METER, QD (CYCLIC(DAY 10-14, 28-DAY CYCLE)(18 CYCLES-20 MONTHS)
  12. TEMOZOLOMIDE [Suspect]
     Active Substance: TEMOZOLOMIDE
     Indication: Palliative care
     Dosage: 200 MILLIGRAM/SQ. METER, QD (CYCLIC(DAY 10-14, 28-DAY CYCLE)(18 CYCLES-20 MONTHS)
     Route: 065
  13. TEMOZOLOMIDE [Suspect]
     Active Substance: TEMOZOLOMIDE
     Indication: Metastatic carcinoid tumour
     Dosage: 200 MILLIGRAM/SQ. METER, QD (CYCLIC(DAY 10-14, 28-DAY CYCLE)(18 CYCLES-20 MONTHS)
     Route: 065
  14. TEMOZOLOMIDE [Suspect]
     Active Substance: TEMOZOLOMIDE
     Indication: Carcinoid tumour pulmonary
     Dosage: 200 MILLIGRAM/SQ. METER, QD (CYCLIC(DAY 10-14, 28-DAY CYCLE)(18 CYCLES-20 MONTHS)
  15. TEMOZOLOMIDE [Suspect]
     Active Substance: TEMOZOLOMIDE
     Indication: Lung cancer metastatic
  16. TEMOZOLOMIDE [Suspect]
     Active Substance: TEMOZOLOMIDE
     Indication: Malignant neoplasm progression
  17. TEMOZOLOMIDE [Suspect]
     Active Substance: TEMOZOLOMIDE
     Indication: Chemotherapy

REACTIONS (12)
  - Metastases to bone [Fatal]
  - Metastases to liver [Fatal]
  - Metastases to breast [Fatal]
  - Neutropenia [Fatal]
  - Anaemia [Fatal]
  - Respiratory tract infection [Fatal]
  - Thrombocytopenia [Unknown]
  - Upper respiratory tract infection [Unknown]
  - Therapy partial responder [Unknown]
  - Infection [Unknown]
  - Off label use [Unknown]
  - Product use in unapproved indication [Unknown]

NARRATIVE: CASE EVENT DATE: 20180501
